FAERS Safety Report 20815526 (Version 2)
Quarter: 2022Q2

REPORT INFORMATION
  Report Type: Spontaneous
  Country: US (occurrence: US)
  Receive Date: 20220511
  Receipt Date: 20220525
  Transmission Date: 20220720
  Serious: No
  Sender: FDA-Public Use
  Company Number: US-TEVA-2022-US-2029930

PATIENT
  Age: 72 Year
  Sex: Female

DRUGS (1)
  1. LORAZEPAM [Suspect]
     Active Substance: LORAZEPAM
     Indication: Insomnia
     Dosage: 2 MILLIGRAM DAILY; FORM STRENGTH:1 MG, TWO 1MG TABLETS AT NIGHT
     Route: 065
     Dates: start: 202204

REACTIONS (4)
  - Abdominal discomfort [Unknown]
  - Product substitution issue [Unknown]
  - Drug ineffective for unapproved indication [Unknown]
  - Dizziness [Unknown]

NARRATIVE: CASE EVENT DATE: 20220401
